FAERS Safety Report 8888045 (Version 1)
Quarter: 2012Q4

REPORT INFORMATION
  Report Type: 
  Country: US (occurrence: None)
  Receive Date: 20121101
  Receipt Date: 20121101
  Transmission Date: 20130627
  Serious: Yes (Hospitalization)
  Sender: FDA-Public Use
  Company Number: None

PATIENT
  Sex: Male
  Weight: 14.4 kg

DRUGS (6)
  1. DAUNORUBICIN [Suspect]
     Dates: end: 20121002
  2. DEXAMETHASONE [Suspect]
     Dates: end: 20121002
  3. METHOTREXATE [Suspect]
     Dates: end: 20120925
  4. PEG-L-ASPARAGINASE (PEGASPARGASE, ONCOSPAR) [Suspect]
     Dates: end: 20120921
  5. VINCRISTINE SULFATE [Suspect]
     Dates: end: 20121009
  6. CYTARABINE [Suspect]
     Dates: end: 20120916

REACTIONS (6)
  - Swollen tongue [None]
  - Face oedema [None]
  - Febrile neutropenia [None]
  - Device related infection [None]
  - Staphylococcus test positive [None]
  - Aspergillosis [None]
